FAERS Safety Report 5054519-3 (Version None)
Quarter: 2006Q3

REPORT INFORMATION
  Report Type: 
  Country: None (occurrence: None)
  Receive Date: 20060714
  Receipt Date: 20060702
  Transmission Date: 20061208
  Serious: Yes (Other)
  Sender: FDA-Public Use
  Company Number: 2006084305

PATIENT
  Age: 27 Year
  Sex: Female
  Weight: 68.9467 kg

DRUGS (3)
  1. CETIRIZINE HCL [Suspect]
     Indication: HYPERSENSITIVITY
     Dates: start: 20060701, end: 20060701
  2. LITHIUM CARBONATE [Concomitant]
  3. TRIQUILAR (ETHINYLESTRADIOL, LEVONORGESTREL) [Concomitant]

REACTIONS (4)
  - DEPRESSED LEVEL OF CONSCIOUSNESS [None]
  - FEELING ABNORMAL [None]
  - NAUSEA [None]
  - SOMNOLENCE [None]
